FAERS Safety Report 10019077 (Version 1)
Quarter: 2014Q1

REPORT INFORMATION
  Report Type: Spontaneous
  Country: US (occurrence: None)
  Receive Date: 20140314
  Receipt Date: 20140314
  Transmission Date: 20141002
  Serious: Yes (Other)
  Sender: FDA-Public Use
  Company Number: None

PATIENT
  Age: 63 Year
  Sex: Female

DRUGS (1)
  1. HUMIRA 40MG ABBVIE [Suspect]
     Indication: PRODUCT USED FOR UNKNOWN INDICATION
     Dosage: 40MG QOW SQ?DATES OF USE: FROM PRIOR TO FEB 2014 TO PRESENT
     Route: 058
     Dates: start: 201402

REACTIONS (1)
  - VIIth nerve paralysis [None]
